FAERS Safety Report 8932881 (Version 3)
Quarter: 2013Q1

REPORT INFORMATION
  Report Type: Spontaneous
  Country: US (occurrence: US)
  Receive Date: 20121129
  Receipt Date: 20130214
  Transmission Date: 20140127
  Serious: No
  Sender: FDA-Public Use
  Company Number: US-009507513-1211USA005714

PATIENT
  Sex: Female

DRUGS (2)
  1. PUREGON PEN [Suspect]
     Indication: PRODUCT USED FOR UNKNOWN INDICATION
     Dosage: UNK
     Dates: start: 20121110
  2. FOLLISTIM AQ CARTRIDGE [Suspect]
     Dosage: UNK
     Route: 058
     Dates: start: 20121110

REACTIONS (3)
  - Underdose [Unknown]
  - Device difficult to use [Unknown]
  - Device malfunction [Unknown]
